FAERS Safety Report 8086685-X (Version None)
Quarter: 2012Q1

REPORT INFORMATION
  Report Type: 
  Country: None (occurrence: None)
  Receive Date: 20120128
  Receipt Date: 20110419
  Transmission Date: 20120608
  Serious: No
  Sender: FDA-Public Use
  Company Number: US-ABBOTT-11P-163-0720840-00

PATIENT
  Sex: Female
  Weight: 72.64 kg

DRUGS (6)
  1. SINGULAIR [Concomitant]
     Indication: HYPERSENSITIVITY
  2. VANCOMYCIN [Concomitant]
     Indication: CROHN'S DISEASE
  3. HUMIRA [Suspect]
     Indication: CROHN'S DISEASE
     Dates: start: 20101001
  4. OMEPRAZOLE [Concomitant]
     Indication: PRODUCT USED FOR UNKNOWN INDICATION
  5. CIPROFLOXACIN [Concomitant]
     Indication: CROHN'S DISEASE
  6. ZYRTEC [Concomitant]
     Indication: HYPERSENSITIVITY

REACTIONS (1)
  - INJECTION SITE REACTION [None]
